FAERS Safety Report 20349896 (Version 1)
Quarter: 2022Q1

REPORT INFORMATION
  Report Type: Spontaneous
  Country: US (occurrence: None)
  Receive Date: 20220119
  Receipt Date: 20220119
  Transmission Date: 20220423
  Serious: Yes (Hospitalization)
  Sender: FDA-Public Use
  Company Number: None

PATIENT
  Age: 18 Year
  Sex: Female
  Weight: 99.6 kg

DRUGS (3)
  1. CISPLATIN [Suspect]
     Active Substance: CISPLATIN
     Dates: end: 20211220
  2. ETOPOSIDE [Suspect]
     Active Substance: ETOPOSIDE
  3. BLEOMYCIN [Suspect]
     Active Substance: BLEOMYCIN SULFATE

REACTIONS (8)
  - Oropharyngeal pain [None]
  - Vomiting [None]
  - Hypophagia [None]
  - Nausea [None]
  - Illness [None]
  - Sinusitis [None]
  - Mucosal inflammation [None]
  - Throat irritation [None]

NARRATIVE: CASE EVENT DATE: 20211227
